FAERS Safety Report 5514014-1 (Version None)
Quarter: 2007Q4

REPORT INFORMATION
  Report Type: 
  Country: None (occurrence: None)
  Receive Date: 20071113
  Receipt Date: 20071101
  Transmission Date: 20080405
  Serious: Yes (Hospitalization)
  Sender: FDA-Public Use
  Company Number: US-AMGEN-US249368

PATIENT
  Age: 50 Year
  Sex: Male

DRUGS (11)
  1. SENSIPAR [Suspect]
     Indication: HYPERPARATHYROIDISM SECONDARY
     Route: 048
     Dates: start: 20070913, end: 20071012
  2. NPH INSULIN [Concomitant]
     Route: 065
  3. CALCITRIOL [Concomitant]
     Route: 065
  4. DOXERCALCIFEROL [Concomitant]
     Route: 065
  5. RENAGEL [Concomitant]
     Route: 065
  6. COUMADIN [Concomitant]
     Route: 048
  7. PROTONIX [Concomitant]
     Route: 065
  8. ATENOLOL [Concomitant]
     Route: 065
  9. REGLAN [Concomitant]
     Route: 065
  10. LIPITOR [Concomitant]
     Route: 065
  11. HUMALOG [Concomitant]
     Route: 065

REACTIONS (7)
  - BLOOD GLUCOSE FLUCTUATION [None]
  - FATIGUE [None]
  - HYPOCALCAEMIA [None]
  - INTERNATIONAL NORMALISED RATIO INCREASED [None]
  - MUSCLE SPASMS [None]
  - MUSCULAR WEAKNESS [None]
  - SINUS BRADYCARDIA [None]
